FAERS Safety Report 11431146 (Version 1)
Quarter: 2015Q3

REPORT INFORMATION
  Report Type: Spontaneous
  Country: US (occurrence: US)
  Receive Date: 20150828
  Receipt Date: 20150828
  Transmission Date: 20151125
  Serious: No
  Sender: FDA-Public Use
  Company Number: US-ROCHE-1195332

PATIENT
  Sex: Female
  Weight: 93.52 kg

DRUGS (3)
  1. PEGASYS [Suspect]
     Active Substance: PEGINTERFERON ALFA-2A
     Indication: CHRONIC HEPATITIS C
     Route: 058
     Dates: start: 20130116
  2. RIBASPHERE [Suspect]
     Active Substance: RIBAVIRIN
     Indication: CHRONIC HEPATITIS C
     Route: 048
     Dates: start: 20120116
  3. PHENERGAN [Concomitant]
     Active Substance: PROMETHAZINE HYDROCHLORIDE

REACTIONS (10)
  - Crying [Unknown]
  - Weight decreased [Unknown]
  - Depression [Unknown]
  - Nausea [Unknown]
  - Sleep disorder [Unknown]
  - Anxiety [Unknown]
  - Hyperhidrosis [Unknown]
  - Headache [Unknown]
  - Insomnia [Unknown]
  - Rash [Unknown]
